FAERS Safety Report 9317734 (Version 1)
Quarter: 2013Q2

REPORT INFORMATION
  Report Type: Spontaneous
  Country: US (occurrence: None)
  Receive Date: 20130529
  Receipt Date: 20130529
  Transmission Date: 20140414
  Serious: No
  Sender: FDA-Public Use
  Company Number: None

PATIENT
  Age: 50 Year
  Sex: Female
  Weight: 62.6 kg

DRUGS (1)
  1. NEOMYCIN SULFATE\POLYMYXIN B [Suspect]
     Dosage: 4 DROPS 3X/DAY OTIC
     Dates: start: 20130510, end: 20130527

REACTIONS (5)
  - Drug ineffective [None]
  - Ear pain [None]
  - Erythema [None]
  - Pruritus [None]
  - Ear swelling [None]
